FAERS Safety Report 8117665-3 (Version None)
Quarter: 2012Q1

REPORT INFORMATION
  Report Type: 
  Country: None (occurrence: None)
  Receive Date: 20120202
  Receipt Date: 20120120
  Transmission Date: 20120608
  Serious: Yes (Death, Hospitalization, Other)
  Sender: FDA-Public Use
  Company Number: 2012MA000986

PATIENT
  Age: 80 Year
  Sex: Male

DRUGS (1)
  1. DIGOXIN [Suspect]
     Dosage: 0.125 MG; QD; PO
     Route: 048
     Dates: start: 20060601, end: 20080508

REACTIONS (19)
  - MEAN CELL HAEMOGLOBIN CONCENTRATION DECREASED [None]
  - CARBON DIOXIDE INCREASED [None]
  - BRAIN NATRIURETIC PEPTIDE INCREASED [None]
  - CONDUCTION DISORDER [None]
  - MYOCARDIAL INFARCTION [None]
  - HAEMOGLOBIN DECREASED [None]
  - LYMPHOCYTE COUNT DECREASED [None]
  - HAEMATOCRIT DECREASED [None]
  - MEAN CELL VOLUME INCREASED [None]
  - TOXICITY TO VARIOUS AGENTS [None]
  - RED BLOOD CELL COUNT DECREASED [None]
  - EOSINOPHIL COUNT DECREASED [None]
  - BLOOD CALCIUM DECREASED [None]
  - PROTHROMBIN TIME PROLONGED [None]
  - BLOOD GLUCOSE INCREASED [None]
  - NEUTROPHIL COUNT INCREASED [None]
  - ACTIVATED PARTIAL THROMBOPLASTIN TIME PROLONGED [None]
  - PRODUCT QUALITY ISSUE [None]
  - PRODUCT MEASURED POTENCY ISSUE [None]
